FAERS Safety Report 9203639 (Version 1)
Quarter: 2013Q2

REPORT INFORMATION
  Report Type: Spontaneous
  Country: BR (occurrence: BR)
  Receive Date: 20130402
  Receipt Date: 20130402
  Transmission Date: 20140414
  Serious: Yes (Other)
  Sender: FDA-Public Use
  Company Number: PHHY2012BR075074

PATIENT
  Age: 67 Year
  Sex: Female

DRUGS (6)
  1. STARFORM [Suspect]
     Indication: BLOOD GLUCOSE INCREASED
     Dosage: 1 DF(120MG/850MG) BID
     Route: 048
  2. STARFORM [Suspect]
     Dosage: 2 DF (120MG/850MG) QD
     Dates: start: 20120827
  3. JANUVIA [Concomitant]
     Indication: DIABETES MELLITUS
     Dosage: 1 DF, QD
     Route: 048
  4. GLIMEPIRIDA [Concomitant]
     Indication: DIABETES MELLITUS
     Dosage: 1 DF, QD
     Route: 048
  5. NOVOLIN N [Concomitant]
     Indication: DIABETES MELLITUS
     Dosage: 15 IU, QD
     Route: 058
  6. VASOPRIL                                /BRA/ [Concomitant]
     Indication: HYPERTENSION
     Dosage: 2 DF, QD
     Route: 048

REACTIONS (4)
  - Blood glucose increased [Recovered/Resolved]
  - Nervousness [Recovered/Resolved]
  - Insomnia [Recovered/Resolved]
  - Incorrect dose administered [Recovered/Resolved]
